FAERS Safety Report 23867821 (Version 1)
Quarter: 2024Q2

REPORT INFORMATION
  Report Type: Spontaneous
  Country: JP (occurrence: JP)
  Receive Date: 20240517
  Receipt Date: 20240517
  Transmission Date: 20240715
  Serious: Yes (Hospitalization, Other)
  Sender: FDA-Public Use
  Company Number: JP-BAYER-2024A072286

PATIENT
  Age: 8 Decade
  Sex: Male

DRUGS (1)
  1. XARELTO [Suspect]
     Active Substance: RIVAROXABAN
     Indication: Peripheral artery restenosis
     Dosage: 2.5 MG, BID
     Route: 048
     Dates: start: 20221122

REACTIONS (3)
  - Thrombosis [Unknown]
  - Intermittent claudication [Unknown]
  - Ankle brachial index abnormal [Unknown]

NARRATIVE: CASE EVENT DATE: 20230830
